FAERS Safety Report 8600510-7 (Version None)
Quarter: 2012Q3

REPORT INFORMATION
  Report Type: 
  Country: None (occurrence: None)
  Receive Date: 20120808
  Receipt Date: 20120808
  Transmission Date: 20120928
  Serious: No
  Sender: FDA-Public Use
  Company Number: None

PATIENT
  Sex: Female
  Weight: 63.5036 kg

DRUGS (1)
  1. HUMALOG PEN [Suspect]
     Indication: UNEVALUABLE EVENT
     Dosage: 6 UNITS 3 TIME DAILY INJ
     Dates: start: 20120523, end: 20120713

REACTIONS (5)
  - BLOOD GLUCOSE DECREASED [None]
  - ASTHENIA [None]
  - GAIT DISTURBANCE [None]
  - HYPOAESTHESIA ORAL [None]
  - VISION BLURRED [None]
